FAERS Safety Report 19674902 (Version 1)
Quarter: 2021Q3

REPORT INFORMATION
  Report Type: Spontaneous
  Country: US (occurrence: US)
  Receive Date: 20210809
  Receipt Date: 20210809
  Transmission Date: 20211014
  Serious: Yes (Other)
  Sender: FDA-Public Use
  Company Number: US-TECHDOW-2021TECHDOW000737

PATIENT
  Age: 70 Year
  Sex: Male

DRUGS (1)
  1. HEPARIN SODIUM INJECTION, USP (PRESERVATIVE FREE) [Suspect]
     Active Substance: HEPARIN SODIUM
     Indication: ANTICOAGULANT THERAPY

REACTIONS (8)
  - Retroperitoneal haematoma [Unknown]
  - Nausea [Unknown]
  - Hypotension [Unknown]
  - Abdominal pain [Unknown]
  - Vomiting [Unknown]
  - Atrial fibrillation [Unknown]
  - Cerebellar infarction [Unknown]
  - Tachycardia [Unknown]
